FAERS Safety Report 22075615 (Version 1)
Quarter: 2023Q1

REPORT INFORMATION
  Report Type: Spontaneous
  Country: IL (occurrence: IL)
  Receive Date: 20230308
  Receipt Date: 20230308
  Transmission Date: 20230417
  Serious: Yes (Other)
  Sender: FDA-Public Use
  Company Number: IL-009507513-2303ISR002277

PATIENT
  Age: 63 Year
  Sex: Male

DRUGS (3)
  1. PEMBROLIZUMAB [Suspect]
     Active Substance: PEMBROLIZUMAB
     Indication: Lung adenocarcinoma
     Dosage: 200 MG ON DAY 1  EVERY  21  DAYS
     Route: 042
  2. VINORELBINE [Concomitant]
     Active Substance: VINORELBINE TARTRATE
     Indication: Lung adenocarcinoma
     Dosage: 30 MILLIGRAM/SQ. METER, ON DAY 1 AND 8 EVERY 21 DAYS
     Route: 042
  3. CARBOPLATIN [Concomitant]
     Active Substance: CARBOPLATIN
     Indication: Lung adenocarcinoma
     Dosage: AREA UNDER CURVE (AUC) 4, DAY 1 EVERY 21 DAYS
     Route: 042

REACTIONS (1)
  - Arthritis reactive [Recovered/Resolved]
